FAERS Safety Report 5238642-6 (Version None)
Quarter: 2007Q1

REPORT INFORMATION
  Report Type: 
  Country: None (occurrence: None)
  Receive Date: 20070214
  Receipt Date: 20070214
  Transmission Date: 20070707
  Serious: Yes (Life-Threatening, Hospitalization)
  Sender: FDA-Public Use
  Company Number: None

PATIENT
  Age: 68 Year
  Sex: Female
  Weight: 84.369 kg

DRUGS (12)
  1. RITUXAN [Suspect]
     Indication: NON-HODGKIN'S LYMPHOMA
     Dosage: 746 MG Q WEEK IV
     Route: 042
     Dates: start: 20061011
  2. RITUXAN [Suspect]
     Indication: NON-HODGKIN'S LYMPHOMA
     Dosage: 746 MG Q WEEK IV
     Route: 042
     Dates: start: 20061018
  3. RITUXAN [Suspect]
     Indication: NON-HODGKIN'S LYMPHOMA
     Dosage: 746 MG Q WEEK IV
     Route: 042
     Dates: start: 20061025
  4. RITUXAN [Suspect]
     Indication: NON-HODGKIN'S LYMPHOMA
     Dosage: 746 MG Q WEEK IV
     Route: 042
     Dates: start: 20061220
  5. COLCHICINE [Concomitant]
  6. SOMA [Concomitant]
  7. ACETAMINOPHEN AND HYDROCODONE BITARTRATE [Concomitant]
  8. EFFEXOR XR [Concomitant]
  9. INDERAL [Concomitant]
  10. LEVAQUIN [Concomitant]
  11. ZOFRAN [Concomitant]
  12. CELEBREX [Concomitant]

REACTIONS (18)
  - AGGRESSION [None]
  - BODY TEMPERATURE DECREASED [None]
  - CARDIOMEGALY [None]
  - COAGULOPATHY [None]
  - DYSPNOEA [None]
  - HYPOAESTHESIA [None]
  - HYPOTENSION [None]
  - LETHARGY [None]
  - LUNG INFILTRATION [None]
  - LYMPHADENOPATHY [None]
  - METABOLIC ACIDOSIS [None]
  - OEDEMA PERIPHERAL [None]
  - PITTING OEDEMA [None]
  - PNEUMONIA [None]
  - RESPIRATORY ACIDOSIS [None]
  - RESPIRATORY FAILURE [None]
  - SEPSIS [None]
  - THROMBOCYTOPENIA [None]
